FAERS Safety Report 7074435-5 (Version None)
Quarter: 2010Q4

REPORT INFORMATION
  Report Type: 
  Country: None (occurrence: None)
  Receive Date: 20101029
  Receipt Date: 20101020
  Transmission Date: 20110411
  Serious: Yes (Other)
  Sender: FDA-Public Use
  Company Number: US-JNJFOC-20100805449

PATIENT
  Sex: Male

DRUGS (2)
  1. SIMPLY SLEEP NIGHTTIME [Suspect]
     Indication: INSOMNIA
     Route: 048
  2. SIMPLY SLEEP NIGHTTIME [Suspect]
     Route: 048

REACTIONS (10)
  - CONTUSION [None]
  - DIZZINESS [None]
  - DRUG INEFFECTIVE [None]
  - EYE INJURY [None]
  - FACIAL BONES FRACTURE [None]
  - FALL [None]
  - HYPERHIDROSIS [None]
  - IMMOBILE [None]
  - PRURITUS [None]
  - ROTATOR CUFF SYNDROME [None]
